FAERS Safety Report 6836492-8 (Version None)
Quarter: 2010Q3

REPORT INFORMATION
  Report Type: 
  Country: None (occurrence: None)
  Receive Date: 20100708
  Receipt Date: 20100629
  Transmission Date: 20110219
  Serious: Yes (Life-Threatening, Hospitalization)
  Sender: FDA-Public Use
  Company Number: 238272K09USA

PATIENT
  Age: 61 Year
  Sex: Female
  Weight: 54 kg

DRUGS (6)
  1. REBIF [Suspect]
     Indication: MULTIPLE SCLEROSIS
     Dosage: 44 MCG, 3 IN 1 WK, SUBCUTANEOUS
     Route: 058
     Dates: start: 20060731, end: 20090401
  2. REBIF [Suspect]
     Indication: MULTIPLE SCLEROSIS
     Dosage: 44 MCG, 3 IN 1 WK, SUBCUTANEOUS
     Route: 058
     Dates: start: 20100105, end: 20100501
  3. MORPHINE [Suspect]
     Indication: PROCEDURAL PAIN
     Dates: start: 20090401, end: 20090401
  4. MYCARDIS HCT (PRITOR /01506701/) [Concomitant]
  5. LEVOTHYROID (LEVOTHYROXINE SODIUM) [Concomitant]
  6. OXYCODONE/ACETAMINOPHEN (OXYCODONE/APAP) [Concomitant]

REACTIONS (8)
  - CLOSTRIDIAL INFECTION [None]
  - COLONIC STENOSIS [None]
  - DEPRESSED LEVEL OF CONSCIOUSNESS [None]
  - DIVERTICULUM [None]
  - GASTRIC DILATATION [None]
  - OVARIAN CYST [None]
  - OVERDOSE [None]
  - SCAR [None]
